FAERS Safety Report 9704548 (Version 1)
Quarter: 2013Q4

REPORT INFORMATION
  Report Type: Report from Study
  Country: US (occurrence: US)
  Receive Date: 20131122
  Receipt Date: 20131122
  Transmission Date: 20140711
  Serious: Yes (Other)
  Sender: FDA-Public Use
  Company Number: US-ROCHE-1307271

PATIENT
  Sex: Female

DRUGS (5)
  1. AVASTIN [Suspect]
     Indication: BREAST CANCER
     Dosage: DOSE: 23/DEC/2011
     Route: 042
     Dates: start: 20111028
  2. DOCETAXEL [Concomitant]
     Indication: BREAST CANCER
     Route: 042
     Dates: start: 20111028
  3. ONDANSETRON HCL [Concomitant]
     Route: 042
  4. DEXAMETHASONE [Concomitant]
     Route: 042
  5. NORMAL SALINE [Concomitant]

REACTIONS (3)
  - Ocular hyperaemia [Unknown]
  - Eye discharge [Unknown]
  - Lacrimation increased [Unknown]
